APPROVED DRUG PRODUCT: POTASSIUM CHLORIDE
Active Ingredient: POTASSIUM CHLORIDE
Strength: 20MEQ
Dosage Form/Route: FOR SOLUTION;ORAL
Application: A213467 | Product #001 | TE Code: AA
Applicant: GRANULES PHARMACEUTICALS INC
Approved: Jan 27, 2022 | RLD: No | RS: No | Type: RX